FAERS Safety Report 20189436 (Version 2)
Quarter: 2022Q1

REPORT INFORMATION
  Report Type: Report from Study
  Country: DE (occurrence: DE)
  Receive Date: 20211215
  Receipt Date: 20220105
  Transmission Date: 20220423
  Serious: Yes (Other)
  Sender: FDA-Public Use
  Company Number: DE-002147023-NVSC2020DE195210

PATIENT
  Sex: Female
  Weight: 70 kg

DRUGS (5)
  1. LETROZOLE [Suspect]
     Active Substance: LETROZOLE
     Indication: Breast cancer metastatic
     Dosage: 2.5 MILLIGRAM, QD (2.5 MG, QD)/ START DATE: 12-JUN-2020
     Route: 048
  2. KISQALI [Suspect]
     Active Substance: RIBOCICLIB
     Indication: Breast cancer metastatic
     Dosage: 600 MILLIGRAM, QD,600 MG, QD/ START DATE: 20-JUN-2020
     Route: 048
     Dates: end: 20200703
  3. KISQALI [Suspect]
     Active Substance: RIBOCICLIB
     Dosage: (SCHEMA 21 DAYS INTAKE, 7 DAYS PAUSE)/16-JUL-2020
     Route: 048
     Dates: end: 20210311
  4. KISQALI [Suspect]
     Active Substance: RIBOCICLIB
     Dosage: (ADMINISTRATION SCHEME 21 DAYS INTAKE, 7 DAYS PAUSE)/12-MAR-2021
     Route: 048
     Dates: end: 20210408
  5. KISQALI [Suspect]
     Active Substance: RIBOCICLIB
     Dosage: ( ADMINISTRATION SCHEME 21 DAYS INTAKE, 7 DAYS PAUSE)/09-APR-2021
     Route: 048

REACTIONS (8)
  - Neutropenia [Recovered/Resolved]
  - Skin toxicity [Recovered/Resolved]
  - Vitamin D decreased [Recovered/Resolved]
  - White blood cell count abnormal [Unknown]
  - Rash pruritic [Recovered/Resolved]
  - Hepatic enzyme increased [Recovered/Resolved]
  - Stomatitis [Recovered/Resolved]
  - Fatigue [Recovered/Resolved]

NARRATIVE: CASE EVENT DATE: 20200630
